FAERS Safety Report 16687654 (Version 1)
Quarter: 2019Q4

REPORT INFORMATION
  Report Type: Spontaneous
  Country: US (occurrence: US)
  Receive Date: 20190808
  Receipt Date: 20190808
  Transmission Date: 20200122
  Serious: Yes (Hospitalization, Other)
  Sender: FDA-Public Use
  Company Number: None

PATIENT
  Age: 47 Year
  Sex: Male
  Weight: 72.6 kg

DRUGS (1)
  1. CERTOLIZUMAB [Suspect]
     Active Substance: CERTOLIZUMAB

REACTIONS (2)
  - Demyelination [None]
  - Multiple sclerosis [None]
